FAERS Safety Report 5217819-X (Version None)
Quarter: 2007Q1

REPORT INFORMATION
  Report Type: 
  Country: None (occurrence: None)
  Receive Date: 20061130
  Receipt Date: 20060724
  Transmission Date: 20070707
  Serious: Yes (Hospitalization, Other)
  Sender: FDA-Public Use
  Company Number: US200607004118

PATIENT
  Sex: Female

DRUGS (1)
  1. ZYPREXA [Suspect]
     Dates: start: 20040205

REACTIONS (5)
  - BLOOD GLUCOSE INCREASED [None]
  - DIABETES MELLITUS INSULIN-DEPENDENT [None]
  - MALAISE [None]
  - VISION BLURRED [None]
  - VOMITING [None]
